FAERS Safety Report 7214131-4 (Version None)
Quarter: 2011Q1

REPORT INFORMATION
  Report Type: 
  Country: None (occurrence: None)
  Receive Date: 20110107
  Receipt Date: 20101224
  Transmission Date: 20110831
  Serious: Yes (Hospitalization)
  Sender: FDA-Public Use
  Company Number: GB-RANBAXY-2010R1-40764

PATIENT
  Age: 21 Year
  Sex: Female

DRUGS (4)
  1. ERYTHROMYCIN [Concomitant]
     Indication: LOWER RESPIRATORY TRACT INFECTION
     Dosage: UNK
     Route: 065
  2. AMOXICILLIN [Concomitant]
     Indication: URINARY TRACT INFECTION
     Dosage: UNK
     Route: 065
  3. ACETAMINOPHEN [Suspect]
     Indication: ARTHRALGIA
     Dosage: 3 G, QD
     Route: 065
  4. CO-CODAMOL [Concomitant]
     Indication: ARTHRALGIA
     Dosage: UNK
     Route: 065

REACTIONS (2)
  - METABOLIC ACIDOSIS [None]
  - DRUG EXPOSURE DURING PREGNANCY [None]
